FAERS Safety Report 9241400 (Version 1)
Quarter: 2013Q2

REPORT INFORMATION
  Report Type: Spontaneous
  Country: US (occurrence: US)
  Receive Date: 20130419
  Receipt Date: 20130419
  Transmission Date: 20140414
  Serious: Yes (Other)
  Sender: FDA-Public Use
  Company Number: US-BIOGENIDEC-2013BI032915

PATIENT
  Sex: Female

DRUGS (4)
  1. TYSABRI [Suspect]
     Indication: MULTIPLE SCLEROSIS
     Route: 042
     Dates: start: 20061219, end: 20121210
  2. VITAMIN D3 [Concomitant]
  3. LAMICTAL [Concomitant]
  4. LEXAPRO [Concomitant]

REACTIONS (6)
  - Convulsion [Unknown]
  - Fatigue [Unknown]
  - Cognitive disorder [Unknown]
  - Depression [Unknown]
  - Gastric ulcer [Unknown]
  - Restlessness [Unknown]
